FAERS Safety Report 12243847 (Version 10)
Quarter: 2024Q4

REPORT INFORMATION
  Report Type: Spontaneous
  Country: US (occurrence: US)
  Receive Date: 20160406
  Receipt Date: 20241227
  Transmission Date: 20250115
  Serious: Yes (Other)
  Sender: PFIZER
  Company Number: US-PFIZER INC-2016192156

PATIENT
  Age: 73 Year
  Sex: Female

DRUGS (2)
  1. XELJANZ [Suspect]
     Active Substance: TOFACITINIB CITRATE
     Indication: Rheumatoid arthritis
     Dosage: 5 MG
  2. XELJANZ [Suspect]
     Active Substance: TOFACITINIB CITRATE
     Dosage: 5 MG, 2X/DAY
     Route: 048

REACTIONS (12)
  - Chronic kidney disease [Unknown]
  - Off label use [Unknown]
  - Anxiety [Unknown]
  - Hypoacusis [Unknown]
  - Mental disorder [Unknown]
  - Productive cough [Unknown]
  - Seasonal allergy [Unknown]
  - Nasal congestion [Unknown]
  - Oropharyngeal pain [Unknown]
  - Eye pain [Unknown]
  - Psychomotor skills impaired [Unknown]
  - Anaemia [Unknown]
